FAERS Safety Report 4848447-3 (Version None)
Quarter: 2005Q4

REPORT INFORMATION
  Report Type: 
  Country: None (occurrence: None)
  Receive Date: 20051208
  Receipt Date: 20051205
  Transmission Date: 20060501
  Serious: Yes (Other)
  Sender: FDA-Public Use
  Company Number: AU-GLAXOSMITHKLINE-B0402916A

PATIENT
  Sex: Male

DRUGS (1)
  1. ZYBAN [Suspect]
     Indication: DRUG USE FOR UNKNOWN INDICATION
     Route: 065

REACTIONS (7)
  - AGGRESSION [None]
  - DYSPNOEA [None]
  - EPISTAXIS [None]
  - FEELING ABNORMAL [None]
  - INSOMNIA [None]
  - TENDERNESS [None]
  - TREMOR [None]
